FAERS Safety Report 10473862 (Version 1)
Quarter: 2014Q3

REPORT INFORMATION
  Report Type: Spontaneous
  Country: FR (occurrence: FR)
  Receive Date: 20140924
  Receipt Date: 20140924
  Transmission Date: 20150326
  Serious: Yes (Other)
  Sender: FDA-Public Use
  Company Number: FR-TAKEDA-2014TUS009022

PATIENT
  Age: 70 Year
  Sex: Male

DRUGS (2)
  1. ARANESP [Concomitant]
     Active Substance: DARBEPOETIN ALFA
     Indication: RENAL FAILURE ACUTE
     Dosage: UNK
  2. ADENURIC [Suspect]
     Active Substance: FEBUXOSTAT
     Indication: PRODUCT USED FOR UNKNOWN INDICATION
     Dosage: UNK
     Route: 048
     Dates: start: 201406, end: 20140917

REACTIONS (2)
  - Dermatitis bullous [Not Recovered/Not Resolved]
  - Skin exfoliation [Not Recovered/Not Resolved]

NARRATIVE: CASE EVENT DATE: 201409
